FAERS Safety Report 9982595 (Version 1)
Quarter: 2014Q1

REPORT INFORMATION
  Report Type: Report from Study
  Country: US (occurrence: US)
  Receive Date: 20140307
  Receipt Date: 20140307
  Transmission Date: 20141002
  Serious: No
  Sender: FDA-Public Use
  Company Number: US-ABBVIE-13P-163-1180795-00

PATIENT
  Age: 69 Year
  Sex: Male

DRUGS (4)
  1. HUMIRA [Suspect]
     Indication: CROHN^S DISEASE
     Dates: start: 20131118, end: 20131118
  2. HUMIRA [Suspect]
     Dates: start: 20131119, end: 20131119
  3. HUMIRA [Suspect]
     Dates: start: 20131202, end: 20131202
  4. HUMIRA [Suspect]
     Dates: start: 20131216

REACTIONS (3)
  - Joint swelling [Recovering/Resolving]
  - Arthralgia [Recovering/Resolving]
  - Back disorder [Unknown]
